FAERS Safety Report 13694808 (Version 2)
Quarter: 2017Q3

REPORT INFORMATION
  Report Type: Report from Study
  Country: US (occurrence: US)
  Receive Date: 20170627
  Receipt Date: 20170704
  Transmission Date: 20171127
  Serious: Yes (Death, Hospitalization, Other)
  Sender: FDA-Public Use
  Company Number: US-GILEAD-2017-0279960

PATIENT
  Age: 83 Year
  Sex: Male

DRUGS (27)
  1. REVATIO [Suspect]
     Active Substance: SILDENAFIL CITRATE
     Indication: PULMONARY HYPERTENSION
     Dosage: 20 MG, TID
     Route: 048
     Dates: start: 201508, end: 20170418
  2. METOLAZONE. [Concomitant]
     Active Substance: METOLAZONE
  3. PROVENTIL HFA                      /00139501/ [Concomitant]
  4. COQ 10 [Concomitant]
     Active Substance: UBIDECARENONE
  5. TIOTROPIUM [Concomitant]
     Active Substance: TIOTROPIUM
  6. AMBRISENTAN [Suspect]
     Active Substance: AMBRISENTAN
     Indication: PRODUCT USED FOR UNKNOWN INDICATION
     Dosage: UNK
     Route: 065
     Dates: end: 201703
  7. COLACE [Concomitant]
     Active Substance: DOCUSATE SODIUM
  8. FERROUS SULFATE. [Concomitant]
     Active Substance: FERROUS SULFATE
  9. NORCO [Concomitant]
     Active Substance: ACETAMINOPHEN\HYDROCODONE BITARTRATE
  10. TERAZOSIN [Concomitant]
     Active Substance: TERAZOSIN\TERAZOSIN HYDROCHLORIDE
  11. BUMETANIDE. [Concomitant]
     Active Substance: BUMETANIDE
  12. ACETAMINOPHEN. [Concomitant]
     Active Substance: ACETAMINOPHEN
  13. POTASSIUM CHLORIDE. [Concomitant]
     Active Substance: POTASSIUM CHLORIDE
  14. ZOFRAN [Concomitant]
     Active Substance: ONDANSETRON HYDROCHLORIDE
  15. SPIRIVA [Concomitant]
     Active Substance: TIOTROPIUM BROMIDE MONOHYDRATE
  16. ALBUTEROL                          /00139501/ [Concomitant]
     Active Substance: ALBUTEROL
  17. KEFLEX [Concomitant]
     Active Substance: CEPHALEXIN
  18. MULTIPLE VITAMINS [Concomitant]
     Active Substance: VITAMINS
  19. PROTONIX                           /00661201/ [Concomitant]
     Active Substance: OMEPRAZOLE
  20. FEBUXOSTAT. [Concomitant]
     Active Substance: FEBUXOSTAT
  21. ULORIC [Concomitant]
     Active Substance: FEBUXOSTAT
  22. WARFARIN [Concomitant]
     Active Substance: WARFARIN
  23. OMEPRAZOLE. [Concomitant]
     Active Substance: OMEPRAZOLE
  24. VISION SHIELD EYE HEALTH [Concomitant]
  25. UBIQUINONE [Concomitant]
     Active Substance: UBIDECARENONE
  26. SYMBICORT [Concomitant]
     Active Substance: BUDESONIDE\FORMOTEROL FUMARATE DIHYDRATE
  27. DOCUSATE SODIUM. [Concomitant]
     Active Substance: DOCUSATE SODIUM

REACTIONS (7)
  - Dyspnoea exertional [Unknown]
  - Peripheral swelling [Unknown]
  - Death [Fatal]
  - Orthopnoea [Unknown]
  - Weight increased [Unknown]
  - Drug hypersensitivity [Unknown]
  - Cardiac failure congestive [Unknown]

NARRATIVE: CASE EVENT DATE: 20170418
